FAERS Safety Report 12198231 (Version 1)
Quarter: 2016Q1

REPORT INFORMATION
  Report Type: Spontaneous
  Country: US (occurrence: None)
  Receive Date: 20160321
  Receipt Date: 20160321
  Transmission Date: 20160526
  Serious: No
  Sender: FDA-Public Use
  Company Number: None

PATIENT
  Age: 63 Year
  Sex: Male

DRUGS (14)
  1. FOLIC ACID. [Concomitant]
     Active Substance: FOLIC ACID
  2. MULTIVITAMIN [Concomitant]
     Active Substance: VITAMINS
  3. ASPIRIN. [Concomitant]
     Active Substance: ASPIRIN
  4. FLOMAX [Concomitant]
     Active Substance: TAMSULOSIN HYDROCHLORIDE
  5. LIPITOR [Concomitant]
     Active Substance: ATORVASTATIN CALCIUM
  6. ENBREL [Suspect]
     Active Substance: ETANERCEPT
     Indication: PSORIASIS
     Route: 058
     Dates: start: 20140307
  7. METFORMIN [Concomitant]
     Active Substance: METFORMIN HYDROCHLORIDE
  8. PREVACID [Concomitant]
     Active Substance: LANSOPRAZOLE
  9. ANALAPORIL [Concomitant]
  10. ACTOS [Concomitant]
     Active Substance: PIOGLITAZONE HYDROCHLORIDE
  11. ATENOLOL. [Concomitant]
     Active Substance: ATENOLOL
  12. AMBIEN [Concomitant]
     Active Substance: ZOLPIDEM TARTRATE
  13. GLIMPERIDE [Concomitant]
     Active Substance: GLIMEPIRIDE
  14. METHOTREXATE [Concomitant]
     Active Substance: METHOTREXATE

REACTIONS (1)
  - Drug dose omission [None]

NARRATIVE: CASE EVENT DATE: 201602
